FAERS Safety Report 4607214-6 (Version None)
Quarter: 2005Q1

REPORT INFORMATION
  Report Type: 
  Country: None (occurrence: None)
  Receive Date: 20050309
  Receipt Date: 20050105
  Transmission Date: 20050727
  Serious: Yes (Hospitalization)
  Sender: FDA-Public Use
  Company Number: 2004239263US

PATIENT
  Sex: Male

DRUGS (7)
  1. BEXTRA [Suspect]
     Indication: ARTHRALGIA
     Dosage: 20 MG
     Dates: start: 20040701, end: 20040812
  2. CELEBREX [Suspect]
     Indication: ARTHRALGIA
     Dosage: 200 MG
     Dates: start: 20010922, end: 20040812
  3. ATORVASTATIN CALCIUM [Concomitant]
  4. ROSIGLITAZONE MALEATE [Concomitant]
  5. GLIBENCLAMIDE [Concomitant]
  6. METOPROLOL TARTRATE [Concomitant]
  7. ACETYLSALICYLIC ACID SRT [Concomitant]

REACTIONS (3)
  - CARDIAC FAILURE CONGESTIVE [None]
  - DRUG INTERACTION [None]
  - PULMONARY OEDEMA [None]
